FAERS Safety Report 5074957-2 (Version None)
Quarter: 2006Q3

REPORT INFORMATION
  Report Type: 
  Country: None (occurrence: None)
  Receive Date: 20060717
  Receipt Date: 20060113
  Transmission Date: 20061208
  Serious: No
  Sender: FDA-Public Use
  Company Number: 2006000125

PATIENT
  Age: 64 Year
  Sex: Male
  Weight: 81.6475 kg

DRUGS (3)
  1. TARCEVA [Suspect]
     Indication: NON-SMALL CELL LUNG CANCER
     Dosage: 150 MG (QD), ORAL
     Route: 048
     Dates: start: 20060109
  2. PREVACID [Concomitant]
  3. ENALAPRIL MALEATE [Concomitant]

REACTIONS (4)
  - GLOSSODYNIA [None]
  - MUSCLE SPASMS [None]
  - ORAL PAIN [None]
  - STOMATITIS [None]
